FAERS Safety Report 14306254 (Version 2)
Quarter: 2017Q4

REPORT INFORMATION
  Report Type: Spontaneous
  Country: JO (occurrence: JO)
  Receive Date: 20171219
  Receipt Date: 20171226
  Transmission Date: 20180321
  Serious: Yes (Other)
  Sender: FDA-Public Use
  Company Number: JO-B.I. PHARMACEUTICALS,INC./RIDGEFIELD-2017-BI-067155

PATIENT
  Age: 58 Year
  Sex: Female

DRUGS (5)
  1. GALVUSMET [Concomitant]
     Active Substance: METFORMIN HYDROCHLORIDE\VILDAGLIPTIN
     Indication: PRODUCT USED FOR UNKNOWN INDICATION
     Dosage: STRENGTH AND UNIT DOSE:  50/1000; DAILY DOSE: 100/2000
     Route: 065
  2. NEXIUM [Concomitant]
     Active Substance: ESOMEPRAZOLE MAGNESIUM
     Indication: PRODUCT USED FOR UNKNOWN INDICATION
     Route: 065
  3. ROXARDIO [Concomitant]
     Indication: PRODUCT USED FOR UNKNOWN INDICATION
     Route: 065
  4. JARDIANCE [Suspect]
     Active Substance: EMPAGLIFLOZIN
     Indication: PRODUCT USED FOR UNKNOWN INDICATION
     Route: 065
  5. AMARYL [Concomitant]
     Active Substance: GLIMEPIRIDE
     Indication: PRODUCT USED FOR UNKNOWN INDICATION
     Route: 065

REACTIONS (9)
  - Dizziness [Unknown]
  - Vertigo [Unknown]
  - Nausea [Unknown]
  - Influenza like illness [Unknown]
  - Diabetic ketoacidosis [Unknown]
  - Asthenia [Unknown]
  - Dry mouth [Unknown]
  - Vomiting [Unknown]
  - Abdominal pain upper [Unknown]
